FAERS Safety Report 5229285-9 (Version None)
Quarter: 2007Q1

REPORT INFORMATION
  Report Type: 
  Country: None (occurrence: None)
  Receive Date: 20061201
  Receipt Date: 20060807
  Transmission Date: 20070707
  Serious: No
  Sender: FDA-Public Use
  Company Number: US200608001859

PATIENT
  Sex: Male

DRUGS (3)
  1. CYMBALTA [Suspect]
     Dosage: 120 MG
  2. AMBIEN [Concomitant]
  3. NEURONTIN [Concomitant]

REACTIONS (2)
  - AMNESIA [None]
  - DEPRESSED MOOD [None]
